FAERS Safety Report 8866592 (Version 1)
Quarter: 2012Q4

REPORT INFORMATION
  Report Type: 
  Country: US (occurrence: US)
  Receive Date: 20121025
  Receipt Date: 20121025
  Transmission Date: 20130627
  Serious: No
  Sender: FDA-Public Use
  Company Number: US-AMGEN-USASP2012012912

PATIENT
  Age: 53 Year
  Sex: Female

DRUGS (10)
  1. ENBREL [Suspect]
     Indication: PRODUCT USED FOR UNKNOWN INDICATION
     Dosage: 50 mg, qwk
  2. METHOTREXATE [Concomitant]
     Dosage: 2.5 mg, UNK
  3. METFORMIN [Concomitant]
     Dosage: 850 mg, UNK
  4. LISINOPRIL [Concomitant]
     Dosage: 5 mg, UNK
  5. SIMVASTATIN [Concomitant]
     Dosage: 80 mg, UNK
  6. CLOBETASOL 0.05% [Concomitant]
  7. GABAPENTIN [Concomitant]
     Dosage: 300 mg, UNK
  8. PRILOSEC                           /00661201/ [Concomitant]
     Dosage: 10 mg, UNK
  9. FOLIC ACID [Concomitant]
  10. HYDROCODONE [Concomitant]

REACTIONS (1)
  - Abdominal pain upper [Unknown]
